FAERS Safety Report 7548330-9 (Version None)
Quarter: 2011Q2

REPORT INFORMATION
  Report Type: 
  Country: None (occurrence: None)
  Receive Date: 20110615
  Receipt Date: 20110607
  Transmission Date: 20111010
  Serious: No
  Sender: FDA-Public Use
  Company Number: US-PFIZER INC-2011076249

PATIENT
  Sex: Female

DRUGS (2)
  1. PRENATAL [Concomitant]
     Dosage: UNK
  2. DEPO-PROVERA [Suspect]
     Indication: CONTRACEPTION
     Dosage: UNK
     Route: 030

REACTIONS (2)
  - HYPERSENSITIVITY [None]
  - URTICARIA [None]
